FAERS Safety Report 9337591 (Version 2)
Quarter: 2013Q3

REPORT INFORMATION
  Report Type: Spontaneous
  Country: US (occurrence: US)
  Receive Date: 20130607
  Receipt Date: 20130715
  Transmission Date: 20140515
  Serious: Yes (Hospitalization, Other)
  Sender: FDA-Public Use
  Company Number: US-009507513-1306USA002092

PATIENT
  Age: 54 Year
  Sex: Male

DRUGS (9)
  1. VICTRELIS [Suspect]
     Indication: HEPATITIS C
     Dosage: 800 MG, TID
     Route: 048
     Dates: start: 20130531
  2. PEGASYS [Suspect]
     Dosage: UNK
     Dates: start: 20130426
  3. REBETOL [Suspect]
     Dosage: UNK
     Route: 048
     Dates: start: 20130426
  4. LITHIUM [Concomitant]
  5. FOLIC ACID [Concomitant]
  6. LORAZEPAM [Concomitant]
  7. PRAVASTATIN SODIUM [Concomitant]
  8. SEROQUEL [Concomitant]
  9. WELLBUTRIN [Concomitant]

REACTIONS (3)
  - Renal failure acute [Recovered/Resolved]
  - Balance disorder [Not Recovered/Not Resolved]
  - Mental status changes [Not Recovered/Not Resolved]
